FAERS Safety Report 6192842-X (Version None)
Quarter: 2009Q2

REPORT INFORMATION
  Report Type: 
  Country: None (occurrence: None)
  Receive Date: 20090518
  Receipt Date: 20090507
  Transmission Date: 20091009
  Serious: Yes (Death, Life-Threatening, Other)
  Sender: FDA-Public Use
  Company Number: US-BAXTER-2009BH008174

PATIENT
  Sex: Male

DRUGS (6)
  1. HEPARIN SODIUM INJECTION [Suspect]
     Indication: DRUG USE FOR UNKNOWN INDICATION
     Route: 065
     Dates: start: 20080301, end: 20080301
  2. HEPARIN SODIUM INJECTION [Suspect]
     Indication: THROMBOSIS PROPHYLAXIS
     Route: 065
     Dates: start: 20080301, end: 20080301
  3. HEPARIN SODIUM INJECTION [Suspect]
     Route: 065
     Dates: start: 20080301, end: 20080301
  4. HEPARIN SODIUM INJECTION [Suspect]
     Route: 065
     Dates: start: 20080430
  5. HEPARIN SODIUM INJECTION [Suspect]
     Route: 065
     Dates: start: 20080430
  6. HEPARIN SODIUM INJECTION [Suspect]
     Route: 065
     Dates: start: 20080430

REACTIONS (15)
  - ABDOMINAL PAIN [None]
  - ANAEMIA [None]
  - BRADYCARDIA [None]
  - CHEST PAIN [None]
  - CONFUSIONAL STATE [None]
  - DEATH [None]
  - ECCHYMOSIS [None]
  - HAEMOLYSIS [None]
  - HYPERSENSITIVITY [None]
  - HYPOTENSION [None]
  - LIVEDO RETICULARIS [None]
  - RENAL FAILURE [None]
  - RESPIRATORY FAILURE [None]
  - SEPSIS [None]
  - SHOCK [None]
